FAERS Safety Report 9307469 (Version 1)
Quarter: 2013Q2

REPORT INFORMATION
  Report Type: Report from Study
  Country: ID (occurrence: ID)
  Receive Date: 20130524
  Receipt Date: 20130524
  Transmission Date: 20140414
  Serious: Yes (Death, Other)
  Sender: FDA-Public Use
  Company Number: PHHY2013ID051652

PATIENT
  Age: 64 Year
  Sex: Male

DRUGS (1)
  1. GLIVEC [Suspect]
     Indication: CHRONIC MYELOID LEUKAEMIA
     Dosage: 100 MG, ONCE4SDO
     Route: 048

REACTIONS (5)
  - Death [Fatal]
  - Vascular injury [Unknown]
  - Typhoid fever [Unknown]
  - White blood cell count increased [Unknown]
  - Platelet count increased [Unknown]
